FAERS Safety Report 9569605 (Version 1)
Quarter: 2013Q3

REPORT INFORMATION
  Report Type: Spontaneous
  Country: US (occurrence: US)
  Receive Date: 20130930
  Receipt Date: 20130930
  Transmission Date: 20140515
  Serious: No
  Sender: FDA-Public Use
  Company Number: US-AMGEN-USASP2013066235

PATIENT
  Age: 58 Year
  Sex: Male

DRUGS (1)
  1. ENBREL [Suspect]
     Indication: PSORIATIC ARTHROPATHY
     Dosage: 50 MG, BID
     Route: 058
     Dates: start: 2009, end: 20130101

REACTIONS (3)
  - Treatment failure [Recovered/Resolved]
  - Drug tolerance [Unknown]
  - Injection site rash [Recovered/Resolved]
